FAERS Safety Report 18304811 (Version 1)
Quarter: 2020Q3

REPORT INFORMATION
  Report Type: Spontaneous
  Country: US (occurrence: US)
  Receive Date: 20200923
  Receipt Date: 20200923
  Transmission Date: 20201103
  Serious: No
  Sender: FDA-Public Use
  Company Number: None

PATIENT
  Age: 75 Year
  Sex: Male

DRUGS (1)
  1. FUROSEMIDE (FUROSEMIDE 80MG TAB) [Suspect]
     Active Substance: FUROSEMIDE
     Indication: CARDIAC FAILURE CONGESTIVE
     Dates: start: 20200523, end: 20200702

REACTIONS (3)
  - Dizziness [None]
  - Hypotension [None]
  - Hypovolaemia [None]

NARRATIVE: CASE EVENT DATE: 20200701
